FAERS Safety Report 9146131 (Version 3)
Quarter: 2013Q3

REPORT INFORMATION
  Report Type: Spontaneous
  Country: JP (occurrence: JP)
  Receive Date: 20130307
  Receipt Date: 20130722
  Transmission Date: 20140515
  Serious: Yes (Death, Life-Threatening, Hospitalization, Other)
  Sender: FDA-Public Use
  Company Number: JP-PFIZER INC-2013076450

PATIENT
  Age: 89 Year
  Sex: Male

DRUGS (13)
  1. UNASYN-S [Suspect]
     Indication: PNEUMONIA
     Dosage: 3 G, 2X/DAY
     Route: 042
     Dates: start: 20130108, end: 20130116
  2. UNASYN-S [Suspect]
     Indication: URINARY TRACT INFECTION
  3. SALINE MIXTURE [Suspect]
     Dosage: 100 ML, 2X/DAY
     Route: 058
     Dates: start: 20130108, end: 20130116
  4. VEEN D [Concomitant]
     Indication: DEHYDRATION
     Dosage: 500 ML, DAILY
     Route: 042
     Dates: start: 20130108, end: 20130113
  5. AMLODIN [Concomitant]
     Indication: HYPERTENSION
     Dosage: 5 MG, DAILY
     Route: 048
  6. ALOSENN [Concomitant]
     Indication: CONSTIPATION
     Dosage: 0.5 G, DAILY
     Route: 048
  7. CARNACULIN [Concomitant]
     Indication: HYPERTENSION
     Dosage: 50 MG, 2X/DAY
     Route: 048
  8. ABILIT [Concomitant]
     Dosage: 100 MG, DAILY
     Route: 048
  9. MAGNESIUM OXIDE [Concomitant]
     Indication: CONSTIPATION
     Dosage: 0.5 G, 2X/DAY
     Route: 048
  10. MYSLEE [Concomitant]
     Dosage: 5 MG, DAILY
     Route: 048
  11. LAXOBERON [Concomitant]
     Dosage: UNK
     Route: 048
  12. GLYCERIN [Concomitant]
     Dosage: UNK
     Route: 054
  13. DOGMATYL [Concomitant]
     Indication: DEPRESSION
     Dosage: 50 MG, 2X/DAY
     Route: 048

REACTIONS (2)
  - Osmotic demyelination syndrome [Not Recovered/Not Resolved]
  - Hypernatraemia [Recovered/Resolved]
